FAERS Safety Report 12220260 (Version 1)
Quarter: 2016Q1

REPORT INFORMATION
  Report Type: Spontaneous
  Country: DE (occurrence: DE)
  Receive Date: 20160330
  Receipt Date: 20160330
  Transmission Date: 20160526
  Serious: Yes (Other)
  Sender: FDA-Public Use
  Company Number: DE-AUROBINDO-AUR-APL-2016-03847

PATIENT
  Sex: Male

DRUGS (1)
  1. SIMVASTATIN 10MG [Suspect]
     Active Substance: SIMVASTATIN
     Indication: PRODUCT USED FOR UNKNOWN INDICATION
     Dosage: 10 MG, UNK
     Route: 048

REACTIONS (3)
  - Limb discomfort [Unknown]
  - Tendon rupture [Unknown]
  - Tendonitis [Unknown]

NARRATIVE: CASE EVENT DATE: 201511
